FAERS Safety Report 7406817-3 (Version None)
Quarter: 2011Q2

REPORT INFORMATION
  Report Type: 
  Country: None (occurrence: None)
  Receive Date: 20110411
  Receipt Date: 20110404
  Transmission Date: 20111010
  Serious: Yes (Other)
  Sender: FDA-Public Use
  Company Number: BR-PFIZER INC-2011009481

PATIENT
  Age: 79 Year
  Sex: Female

DRUGS (5)
  1. LYRICA [Suspect]
     Indication: PAIN
     Dosage: 75 MG, 1X/DAY
     Route: 048
     Dates: start: 20110106
  2. MONTELUKAST SODIUM [Concomitant]
     Indication: BRONCHITIS
     Dosage: 10 MG, 1X/DAY
  3. MACRODANTINA [Concomitant]
     Indication: URINARY TRACT INFECTION
     Dosage: UNK
     Dates: end: 20110105
  4. BALCOR [Concomitant]
     Indication: CARDIAC DISORDER
     Dosage: 180 MG, 1X/DAY
  5. SUSTRATE [Concomitant]
     Indication: CARDIAC DISORDER
     Dosage: UNK

REACTIONS (2)
  - CONFUSIONAL STATE [None]
  - DYSSTASIA [None]
